FAERS Safety Report 22162602 (Version 1)
Quarter: 2023Q1

REPORT INFORMATION
  Report Type: Spontaneous
  Country: BE (occurrence: BE)
  Receive Date: 20230331
  Receipt Date: 20230331
  Transmission Date: 20230418
  Serious: Yes (Other)
  Sender: FDA-Public Use
  Company Number: None

PATIENT
  Age: 59 Year
  Sex: Male

DRUGS (3)
  1. ZOCOR [Suspect]
     Active Substance: SIMVASTATIN
     Dosage: UNK
  2. CRESTOR [Suspect]
     Active Substance: ROSUVASTATIN CALCIUM
     Dosage: UNK
  3. COMIRNATY [Suspect]
     Active Substance: TOZINAMERAN
     Dosage: UNK

REACTIONS (7)
  - Muscle rupture [Unknown]
  - Polymyalgia rheumatica [Unknown]
  - Muscular weakness [Unknown]
  - C-reactive protein increased [Unknown]
  - Myalgia [Unknown]
  - Carpal tunnel syndrome [Unknown]
  - Tendon disorder [Unknown]
